FAERS Safety Report 25196589 (Version 1)
Quarter: 2025Q2

REPORT INFORMATION
  Report Type: Spontaneous
  Country: MX (occurrence: MX)
  Receive Date: 20250415
  Receipt Date: 20250415
  Transmission Date: 20250717
  Serious: Yes (Other)
  Sender: SANDOZ
  Company Number: MX-002147023-NVSC2025MX039845

PATIENT
  Age: 46 Year
  Sex: Female
  Weight: 103 kg

DRUGS (2)
  1. METFORMIN HYDROCHLORIDE\VILDAGLIPTIN [Suspect]
     Active Substance: METFORMIN HYDROCHLORIDE\VILDAGLIPTIN
     Indication: Diabetes mellitus
     Dosage: 1 DOSAGE FORM (IN THE MORNING), QD
     Route: 048
     Dates: start: 2022
  2. METFORMIN [Suspect]
     Active Substance: METFORMIN HYDROCHLORIDE
     Indication: Diabetes mellitus
     Dosage: 850 MG (1 DF), QD (AT NIGHT)
     Route: 048
     Dates: start: 2016

REACTIONS (1)
  - Omphalitis [Recovered/Resolved]

NARRATIVE: CASE EVENT DATE: 20250226
